FAERS Safety Report 10748528 (Version 7)
Quarter: 2015Q2

REPORT INFORMATION
  Report Type: Report from Study
  Country: US (occurrence: US)
  Receive Date: 20150129
  Receipt Date: 20150520
  Transmission Date: 20150821
  Serious: Yes (Hospitalization)
  Sender: FDA-Public Use
  Company Number: US-EISAI MEDICAL RESEARCH-EC-2015-003267

PATIENT
  Age: 73 Year
  Sex: Male

DRUGS (5)
  1. ERIBULIN [Suspect]
     Active Substance: ERIBULIN
     Route: 041
     Dates: start: 20150217, end: 20150223
  2. ERIBULIN [Suspect]
     Active Substance: ERIBULIN
     Route: 041
     Dates: start: 20150309, end: 20150316
  3. CETUXIMAB [Suspect]
     Active Substance: CETUXIMAB
     Route: 041
     Dates: start: 20150112, end: 20150323
  4. CETUXIMAB [Suspect]
     Active Substance: CETUXIMAB
     Indication: HEAD AND NECK CANCER
     Route: 041
     Dates: start: 20150105, end: 20150105
  5. ERIBULIN [Suspect]
     Active Substance: ERIBULIN
     Indication: HEAD AND NECK CANCER
     Route: 041
     Dates: start: 20150105, end: 20150112

REACTIONS (9)
  - Productive cough [Recovered/Resolved]
  - Neutropenia [Recovered/Resolved]
  - Decreased appetite [Unknown]
  - Sepsis [Not Recovered/Not Resolved]
  - Respiratory failure [Unknown]
  - Wheezing [Recovered/Resolved]
  - Dyspnoea [Recovering/Resolving]
  - Chronic obstructive pulmonary disease [Recovering/Resolving]
  - Febrile neutropenia [Recovered/Resolved]

NARRATIVE: CASE EVENT DATE: 20150116
